FAERS Safety Report 5588901-2 (Version None)
Quarter: 2008Q1

REPORT INFORMATION
  Report Type: 
  Country: None (occurrence: None)
  Receive Date: 20080111
  Receipt Date: 20080103
  Transmission Date: 20080703
  Serious: Yes (Other)
  Sender: FDA-Public Use
  Company Number: US-JNJFOC-20070500551

PATIENT
  Sex: Male
  Weight: 35.15 kg

DRUGS (3)
  1. CONCERTA [Suspect]
     Route: 048
  2. CONCERTA [Suspect]
     Indication: ATTENTION DEFICIT/HYPERACTIVITY DISORDER
     Route: 048
  3. GROWTH HORMONE (NOS) [Concomitant]

REACTIONS (6)
  - ABDOMINAL DISCOMFORT [None]
  - ANXIETY [None]
  - BLOOD GROWTH HORMONE DECREASED [None]
  - GROWTH RETARDATION [None]
  - SCOLIOSIS [None]
  - WEIGHT DECREASED [None]
